FAERS Safety Report 4836277-8 (Version None)
Quarter: 2005Q4

REPORT INFORMATION
  Report Type: 
  Country: None (occurrence: None)
  Receive Date: 20051123
  Receipt Date: 20051117
  Transmission Date: 20060501
  Serious: Yes (Hospitalization)
  Sender: FDA-Public Use
  Company Number: PHHO2005JP18238

PATIENT
  Age: 82 Year
  Sex: Female
  Weight: 52 kg

DRUGS (5)
  1. NORVASC [Concomitant]
     Indication: HYPERTENSION
  2. MEVALOTIN [Concomitant]
     Indication: HYPERCHOLESTEROLAEMIA
  3. DIOVAN [Suspect]
     Indication: HYPERTENSION
     Dosage: 80 MG, QD
     Route: 048
     Dates: start: 20031010
  4. LANIRAPID [Concomitant]
     Indication: ATRIAL FIBRILLATION
  5. BUFFERIN [Concomitant]
     Indication: ATRIAL FIBRILLATION

REACTIONS (6)
  - CONCOMITANT DISEASE PROGRESSION [None]
  - HAEMANGIOMA [None]
  - HAEMANGIOMA REMOVAL [None]
  - HAEMATEMESIS [None]
  - OESOPHAGEAL ACHALASIA [None]
  - SURGERY [None]
